FAERS Safety Report 16483362 (Version 4)
Quarter: 2019Q3

REPORT INFORMATION
  Report Type: Spontaneous
  Country: JP (occurrence: JP)
  Receive Date: 20190627
  Receipt Date: 20190716
  Transmission Date: 20191004
  Serious: Yes (Life-Threatening, Hospitalization, Other)
  Sender: FDA-Public Use
  Company Number: JP-PFIZER INC-2019272219

PATIENT
  Age: 91 Year
  Sex: Male

DRUGS (4)
  1. MEROPENEM. [Suspect]
     Active Substance: MEROPENEM
     Indication: DEVICE RELATED SEPSIS
     Dosage: 2 G, DAILY
  2. VANCOMYCIN [Suspect]
     Active Substance: VANCOMYCIN
     Indication: DEVICE RELATED SEPSIS
     Dosage: 0.5 G, DAILY
  3. CEFAZOLIN [Suspect]
     Active Substance: CEFAZOLIN
     Indication: DEVICE RELATED SEPSIS
     Dosage: UNK
  4. CEFAZOLIN [Suspect]
     Active Substance: CEFAZOLIN
     Indication: STAPHYLOCOCCAL INFECTION

REACTIONS (4)
  - Dysbiosis [Unknown]
  - Cerebral haemorrhage [Unknown]
  - Vitamin K deficiency [Unknown]
  - Coagulopathy [Recovered/Resolved]
